FAERS Safety Report 8364048-7 (Version None)
Quarter: 2012Q2

REPORT INFORMATION
  Report Type: 
  Country: None (occurrence: None)
  Receive Date: 20120516
  Receipt Date: 20120507
  Transmission Date: 20120825
  Serious: Yes (Hospitalization)
  Sender: FDA-Public Use
  Company Number: BR-ASTRAZENECA-2012SE29785

PATIENT
  Age: 58 Year
  Sex: Male

DRUGS (2)
  1. BRILINTA [Suspect]
     Indication: ARTERIAL OCCLUSIVE DISEASE
     Route: 048
     Dates: start: 20110601
  2. CRESTOR [Suspect]
     Dosage: DAILY
     Route: 048
     Dates: start: 20110101

REACTIONS (3)
  - ARTERIAL STENOSIS [None]
  - OFF LABEL USE [None]
  - GASTROINTESTINAL INJURY [None]
